FAERS Safety Report 5811027-7 (Version None)
Quarter: 2008Q3

REPORT INFORMATION
  Report Type: 
  Country: None (occurrence: None)
  Receive Date: 20080710
  Receipt Date: 20080702
  Transmission Date: 20090109
  Serious: Yes (Other)
  Sender: FDA-Public Use
  Company Number: 2008SP013181

PATIENT
  Age: 45 Year
  Sex: Female

DRUGS (1)
  1. NEOCLARITYN (DESLORATADINE) (DESLORATADINE) [Suspect]
     Indication: SEASONAL ALLERGY
     Dosage: 5 MG; PO
     Route: 048

REACTIONS (4)
  - DEPRESSION [None]
  - IRRITABILITY [None]
  - PARANOIA [None]
  - SUICIDAL IDEATION [None]
